FAERS Safety Report 8772535 (Version 2)
Quarter: 2014Q4

REPORT INFORMATION
  Report Type: Spontaneous
  Country: US (occurrence: US)
  Receive Date: 20120905
  Receipt Date: 20141126
  Transmission Date: 20150529
  Serious: Yes (Hospitalization, Other)
  Sender: FDA-Public Use
  Company Number: US-009507513-1208USA012599

PATIENT
  Sex: Male

DRUGS (2)
  1. PROPECIA [Suspect]
     Active Substance: FINASTERIDE
     Indication: ALOPECIA
  2. PROPECIA [Suspect]
     Active Substance: FINASTERIDE
     Indication: ANDROGENETIC ALOPECIA
     Dosage: 1 MG, UNK
     Route: 048
     Dates: start: 199811, end: 2002

REACTIONS (11)
  - Hypogonadism [Unknown]
  - Limb injury [Unknown]
  - Anxiety [Unknown]
  - Organic erectile dysfunction [Unknown]
  - Depression [Unknown]
  - Basal cell carcinoma [Unknown]
  - Libido decreased [Unknown]
  - Peyronie^s disease [Unknown]
  - Cognitive disorder [Not Recovered/Not Resolved]
  - Panic attack [Unknown]
  - Sexual dysfunction [Not Recovered/Not Resolved]

NARRATIVE: CASE EVENT DATE: 2002
